FAERS Safety Report 21414844 (Version 2)
Quarter: 2022Q4

REPORT INFORMATION
  Report Type: Report from Study
  Country: US (occurrence: US)
  Receive Date: 20221006
  Receipt Date: 20221130
  Transmission Date: 20230112
  Serious: Yes (Hospitalization, Other)
  Sender: FDA-Public Use
  Company Number: US-ABBVIE-4140898

PATIENT
  Age: 74 Year
  Sex: Male
  Weight: 88.45 kg

DRUGS (6)
  1. HUMIRA [Suspect]
     Active Substance: ADALIMUMAB
     Indication: Crohn^s disease
     Dosage: CF/FORM STRENGTH: 40 MILLIGRAM?START DATE TEXT: 2005-2007?LAST ADMIN DATE- 2022
     Route: 058
  2. HUMIRA [Suspect]
     Active Substance: ADALIMUMAB
     Dosage: CF/FORM STRENGTH: 40 MILLIGRAM?FIRST ADMIN DATE- 2022
     Route: 058
  3. PFIZER-BIONTECH COVID-19 VACCINE [Concomitant]
     Active Substance: TOZINAMERAN
     Indication: COVID-19 immunisation
     Dosage: 1 IN ONCE 1ST DOSE
     Route: 030
     Dates: start: 20210302, end: 20210302
  4. PFIZER-BIONTECH COVID-19 VACCINE [Concomitant]
     Active Substance: TOZINAMERAN
     Indication: COVID-19 immunisation
     Dosage: 1 IN ONCE 2ND DOSE
     Route: 030
     Dates: start: 20210405, end: 20210405
  5. PFIZER-BIONTECH COVID-19 VACCINE [Concomitant]
     Active Substance: TOZINAMERAN
     Indication: COVID-19 immunisation
     Dosage: 1 IN ONCE BOOSTER DOSE
     Route: 030
     Dates: start: 20211005, end: 20211005
  6. OMEPRAZOLE [Concomitant]
     Active Substance: OMEPRAZOLE
     Indication: Gastrooesophageal reflux disease

REACTIONS (3)
  - Intestinal obstruction [Recovered/Resolved]
  - Asymptomatic COVID-19 [Recovered/Resolved]
  - Adhesion [Unknown]

NARRATIVE: CASE EVENT DATE: 20220701
